FAERS Safety Report 6289208-0 (Version None)
Quarter: 2009Q3

REPORT INFORMATION
  Report Type: 
  Country: None (occurrence: None)
  Receive Date: 20090728
  Receipt Date: 20090721
  Transmission Date: 20100115
  Serious: Yes (Hospitalization)
  Sender: FDA-Public Use
  Company Number: 2009SP016170

PATIENT
  Age: 75 Year
  Sex: Male

DRUGS (1)
  1. TEMODAL [Suspect]
     Indication: GLIOBLASTOMA
     Dosage: 120 MG; QD
     Dates: start: 20090710, end: 20090717

REACTIONS (3)
  - BACTERIAL SEPSIS [None]
  - DISTURBANCE IN ATTENTION [None]
  - MUSCLE SPASMS [None]
